FAERS Safety Report 12493705 (Version 2)
Quarter: 2016Q3

REPORT INFORMATION
  Report Type: Report from Study
  Country: CA (occurrence: CA)
  Receive Date: 20160623
  Receipt Date: 20160712
  Transmission Date: 20161109
  Serious: Yes (Hospitalization)
  Sender: FDA-Public Use
  Company Number: CA-JNJFOC-20160620931

PATIENT
  Age: 48 Year
  Sex: Female
  Weight: 116 kg

DRUGS (1)
  1. SIMPONI [Suspect]
     Active Substance: GOLIMUMAB
     Indication: RHEUMATOID ARTHRITIS
     Route: 042
     Dates: start: 20150213

REACTIONS (4)
  - Blister [Recovering/Resolving]
  - Bacterial infection [Recovering/Resolving]
  - Joint swelling [Recovering/Resolving]
  - Cellulitis [Recovering/Resolving]

NARRATIVE: CASE EVENT DATE: 20160606
